FAERS Safety Report 5330220-3 (Version None)
Quarter: 2007Q2

REPORT INFORMATION
  Report Type: 
  Country: None (occurrence: None)
  Receive Date: 20070521
  Receipt Date: 20070507
  Transmission Date: 20071010
  Serious: Yes (Other)
  Sender: FDA-Public Use
  Company Number: US-ELI_LILLY_AND_COMPANY-US200705002223

PATIENT
  Age: 45 Year
  Sex: Female

DRUGS (3)
  1. STRATTERA [Suspect]
     Dosage: 80 MG, UNK
     Dates: end: 20070501
  2. DYAZIDE [Concomitant]
  3. FLUOXETINE HYDROCHLORIDE [Concomitant]

REACTIONS (4)
  - CONSTIPATION [None]
  - GASTRIC BYPASS [None]
  - HYPERHIDROSIS [None]
  - HYPERTENSION [None]
